FAERS Safety Report 7451212-4 (Version None)
Quarter: 2011Q2

REPORT INFORMATION
  Report Type: 
  Country: None (occurrence: None)
  Receive Date: 20110502
  Receipt Date: 20110418
  Transmission Date: 20111010
  Serious: Yes (Hospitalization)
  Sender: FDA-Public Use
  Company Number: PHHY2010US81281

PATIENT
  Sex: Male

DRUGS (1)
  1. GLEEVEC [Suspect]
     Indication: CHRONIC MYELOID LEUKAEMIA
     Dosage: 400 MG, QD
     Route: 048
     Dates: start: 20101111

REACTIONS (5)
  - PULMONARY OEDEMA [None]
  - NEOPLASM MALIGNANT [None]
  - BLADDER CANCER [None]
  - DYSPNOEA [None]
  - HEART RATE INCREASED [None]
